FAERS Safety Report 6354537-9 (Version None)
Quarter: 2009Q3

REPORT INFORMATION
  Report Type: 
  Country: None (occurrence: None)
  Receive Date: 20090909
  Receipt Date: 20090825
  Transmission Date: 20100115
  Serious: No
  Sender: FDA-Public Use
  Company Number: 8050919

PATIENT
  Age: 84 Year
  Sex: Male
  Weight: 65.3 kg

DRUGS (4)
  1. KEPPRA [Suspect]
     Indication: CONVULSION
     Dosage: 250 MG 2/D PO
     Route: 048
     Dates: start: 20090801
  2. DOXAZISIN [Concomitant]
  3. ENALAPRIL MALEATE [Concomitant]
  4. ASPIRIN [Concomitant]

REACTIONS (2)
  - FATIGUE [None]
  - GAIT DISTURBANCE [None]
